FAERS Safety Report 23503278 (Version 1)
Quarter: 2024Q1

REPORT INFORMATION
  Report Type: Spontaneous
  Country: CA (occurrence: CA)
  Receive Date: 20240208
  Receipt Date: 20240208
  Transmission Date: 20240410
  Serious: Yes (Death, Hospitalization, Other)
  Sender: FDA-Public Use
  Company Number: CA-HLS-202400432

PATIENT
  Age: 37 Year
  Sex: Male

DRUGS (8)
  1. CLOMIPRAMINE [Suspect]
     Active Substance: CLOMIPRAMINE
     Indication: Obsessive-compulsive disorder
     Dosage: 1 EVERY 24 HOURS?AMOUNT: 100 MILLIGRAM?NOT SPECIFIED DOSAGE FORM
     Route: 065
  2. CLOMIPRAMINE [Suspect]
     Active Substance: CLOMIPRAMINE
     Indication: Schizophrenia
     Dosage: 1 EVERY 24 HOURS?AMOUNT: 100 MILLIGRAM?NOT SPECIFIED DOSAGE FORM
     Route: 065
  3. CLOZAPINE [Suspect]
     Active Substance: CLOZAPINE
     Indication: Obsessive-compulsive disorder
     Dosage: 1 EVERY 24 HOURS?AMOUNT: 100 MILLIGRAM?TABLETS DOSAGE FORM
     Route: 065
  4. CLOZAPINE [Suspect]
     Active Substance: CLOZAPINE
     Indication: Schizophrenia
     Dosage: 1 EVERY 24 HOURS?AMOUNT: 100 MILLIGRAM?TABLETS DOSAGE FORM
     Route: 065
  5. FLUVOXAMINE [Suspect]
     Active Substance: FLUVOXAMINE
     Indication: Obsessive-compulsive disorder
     Dosage: AMOUNT: 50 MILLIGRAM
     Route: 065
  6. FLUVOXAMINE [Suspect]
     Active Substance: FLUVOXAMINE
     Indication: Schizophrenia
     Dosage: AMOUNT: 50 MILLIGRAM
     Route: 065
  7. FLUVOXAMINE [Suspect]
     Active Substance: FLUVOXAMINE
     Indication: Obsessive-compulsive disorder
     Dosage: 1 EVERY 24 HOURS?AMOUNT: 300 MILLIGRAM?TABLETS DOSAGE FORM
     Route: 065
  8. FLUVOXAMINE [Suspect]
     Active Substance: FLUVOXAMINE
     Indication: Schizophrenia
     Dosage: 1 EVERY 24 HOURS?AMOUNT: 300 MILLIGRAM?TABLETS DOSAGE FORM
     Route: 065

REACTIONS (5)
  - Deep vein thrombosis [Fatal]
  - Drug interaction [Fatal]
  - Product availability issue [Fatal]
  - Psychiatric decompensation [Fatal]
  - Pulmonary embolism [Fatal]
